FAERS Safety Report 8870233 (Version 1)
Quarter: 2012Q4

REPORT INFORMATION
  Report Type: 
  Country: US (occurrence: US)
  Receive Date: 20121026
  Receipt Date: 20121026
  Transmission Date: 20130627
  Serious: No
  Sender: FDA-Public Use
  Company Number: US-AMGEN-USASP2012047823

PATIENT
  Age: 58 Year
  Sex: Female
  Weight: 89.8 kg

DRUGS (15)
  1. ENBREL [Suspect]
     Indication: PRODUCT USED FOR UNKNOWN INDICATION
     Dosage: 50 mg, qwk
     Route: 058
  2. STRATTERA [Concomitant]
     Dosage: 100 mg, UNK
  3. ZOLOFT [Concomitant]
     Dosage: 25 mg, UNK
  4. LEUCOVORIN CA [Concomitant]
     Dosage: 25 mg, UNK
  5. METHOTREXATE [Concomitant]
     Dosage: 2.5 mg, UNK
  6. ADVAIR [Concomitant]
     Dosage: 250/50
  7. OXYBUTYNIN [Concomitant]
     Dosage: 5 mg, UNK
  8. ALPRAZOLAM [Concomitant]
     Dosage: 0.25 mg, UNK
  9. ACIDOPHILUS [Concomitant]
     Dosage: UNK
  10. RANITIDINE [Concomitant]
     Dosage: 150 mg, UNK
  11. HYDROCODONE [Concomitant]
     Dosage: 10-300
  12. MULTIVITAMIN                       /00097801/ [Concomitant]
     Dosage: UNK
  13. TYLENOL EXTRA STRENGTH [Concomitant]
     Dosage: UNK
  14. FOLIC ACID [Concomitant]
     Dosage: 5 mg, UNK
  15. GINKOBA [Concomitant]
     Dosage: 40 mg, UNK

REACTIONS (3)
  - Arthralgia [Unknown]
  - Malaise [Unknown]
  - Infection [Unknown]
